FAERS Safety Report 21949859 (Version 1)
Quarter: 2023Q1

REPORT INFORMATION
  Report Type: Spontaneous
  Country: GB (occurrence: GB)
  Receive Date: 20230203
  Receipt Date: 20230203
  Transmission Date: 20230418
  Serious: Yes (Hospitalization, Other)
  Sender: FDA-Public Use
  Company Number: GB-SANOFI-01149314

PATIENT
  Age: 23 Year
  Sex: Female

DRUGS (10)
  1. INSULIN HUMAN [Suspect]
     Active Substance: INSULIN HUMAN
     Indication: Type 1 diabetes mellitus
     Dosage: 72 IU, QD
  2. INSULIN LISPRO [Suspect]
     Active Substance: INSULIN LISPRO
     Indication: Type 1 diabetes mellitus
     Dosage: UNK
  3. HYDROCORTISONE [Concomitant]
     Active Substance: HYDROCORTISONE
  4. FLUDROCORTISONE [Concomitant]
     Active Substance: FLUDROCORTISONE
  5. IVABRADINE [Concomitant]
     Active Substance: IVABRADINE
  6. KETOTIFEN [Concomitant]
     Active Substance: KETOTIFEN
  7. NOVORAPID [Concomitant]
     Active Substance: INSULIN ASPART
  8. INSULIN PORK\INSULIN PURIFIED PORK [Concomitant]
     Active Substance: INSULIN PORK\INSULIN PURIFIED PORK
  9. METACRESOL [Concomitant]
     Active Substance: METACRESOL
  10. SODIUM CHLORIDE [Concomitant]
     Active Substance: SODIUM CHLORIDE
     Indication: Autonomic nervous system imbalance

REACTIONS (18)
  - COVID-19 [Unknown]
  - Autonomic nervous system imbalance [Unknown]
  - Malaise [Unknown]
  - Addison^s disease [Unknown]
  - Autoimmune disorder [Unknown]
  - Mast cell activation syndrome [Unknown]
  - Diabetes mellitus inadequate control [Unknown]
  - Angioedema [Unknown]
  - Drug hypersensitivity [Unknown]
  - Rash [Unknown]
  - Illness [Unknown]
  - Insulin resistance [Unknown]
  - Nausea [Unknown]
  - Weight increased [Unknown]
  - Pallor [Unknown]
  - Post-acute COVID-19 syndrome [Unknown]
  - Wrong product administered [Unknown]
  - Wrong technique in device usage process [Unknown]

NARRATIVE: CASE EVENT DATE: 20050101
